FAERS Safety Report 5531729-X (Version None)
Quarter: 2007Q4

REPORT INFORMATION
  Report Type: 
  Country: None (occurrence: None)
  Receive Date: 20071203
  Receipt Date: 20071127
  Transmission Date: 20080405
  Serious: Yes (Hospitalization)
  Sender: FDA-Public Use
  Company Number: PL-BRISTOL-MYERS SQUIBB COMPANY-13877329

PATIENT
  Age: 50 Year
  Sex: Female

DRUGS (8)
  1. ABATACEPT [Suspect]
     Indication: RHEUMATOID ARTHRITIS
     Route: 042
     Dates: start: 20050427
  2. METHOTREXATE TABS [Suspect]
     Indication: RHEUMATOID ARTHRITIS
     Route: 048
     Dates: start: 20021001
  3. METHYLPREDNISOLONE [Concomitant]
     Dates: start: 20040101
  4. EUTHYROX [Concomitant]
     Dates: start: 20041201
  5. DICLOFENAC [Concomitant]
     Dates: start: 20010101
  6. ACCUPRO [Concomitant]
     Dates: start: 20010101
  7. FOLIC ACID [Concomitant]
     Dates: start: 20010901
  8. BISOCARD [Concomitant]
     Dates: start: 20070813

REACTIONS (2)
  - ARTHRITIS [None]
  - PSORIASIS [None]
